FAERS Safety Report 7390073-9 (Version None)
Quarter: 2011Q2

REPORT INFORMATION
  Report Type: 
  Country: None (occurrence: None)
  Receive Date: 20110401
  Receipt Date: 20110329
  Transmission Date: 20111010
  Serious: Yes (Other)
  Sender: FDA-Public Use
  Company Number: GB-PFIZER INC-2011070536

PATIENT
  Age: 49 Year
  Sex: Female

DRUGS (3)
  1. CHAMPIX [Suspect]
     Indication: SMOKING CESSATION THERAPY
     Dosage: 1 MG, 2X/DAY
     Route: 048
     Dates: start: 20110201, end: 20110315
  2. NEXIUM [Concomitant]
  3. SALBUTAMOL [Concomitant]

REACTIONS (2)
  - NAUSEA [None]
  - BILIARY COLIC [None]
